FAERS Safety Report 24304403 (Version 1)
Quarter: 2024Q3

REPORT INFORMATION
  Report Type: Spontaneous
  Country: US (occurrence: None)
  Receive Date: 20240909
  Receipt Date: 20240909
  Transmission Date: 20241016
  Serious: Yes (Life-Threatening, Hospitalization, Other)
  Sender: Public
  Company Number: None

PATIENT
  Age: 64 Year
  Sex: Female
  Weight: 92.53 kg

DRUGS (6)
  1. TIRZEPATIDE [Suspect]
     Active Substance: TIRZEPATIDE
     Indication: Type 2 diabetes mellitus
     Dosage: FREQUENCY : WEEKLY;?
     Route: 058
  2. TIRZEPATIDE [Suspect]
     Active Substance: TIRZEPATIDE
     Indication: Obesity
  3. WARFARIN [Suspect]
     Active Substance: WARFARIN
  4. MOUNJARO [Suspect]
     Active Substance: TIRZEPATIDE
  5. DONEPEZIL [Concomitant]
     Active Substance: DONEPEZIL\DONEPEZIL HYDROCHLORIDE
  6. MEXILETENE [Concomitant]

REACTIONS (7)
  - Abdominal pain [None]
  - Thrombosis mesenteric vessel [None]
  - Portal vein thrombosis [None]
  - Gastrointestinal oedema [None]
  - Intra-abdominal fluid collection [None]
  - Anticoagulation drug level above therapeutic [None]
  - Epistaxis [None]

NARRATIVE: CASE EVENT DATE: 20240907
